FAERS Safety Report 19564329 (Version 1)
Quarter: 2021Q3

REPORT INFORMATION
  Report Type: Spontaneous
  Country: GB (occurrence: GB)
  Receive Date: 20210716
  Receipt Date: 20210716
  Transmission Date: 20211014
  Serious: Yes (Death, Other)
  Sender: FDA-Public Use
  Company Number: GB-SA-2021SA192460

PATIENT
  Sex: Female

DRUGS (1)
  1. KEVZARA [Suspect]
     Active Substance: SARILUMAB
     Indication: VASCULITIS
     Dosage: 200 MG, QOW
     Route: 058
     Dates: start: 202105, end: 202107

REACTIONS (2)
  - Off label use [Unknown]
  - Death [Fatal]
